FAERS Safety Report 7526293-X (Version None)
Quarter: 2011Q2

REPORT INFORMATION
  Report Type: 
  Country: None (occurrence: None)
  Receive Date: 20110606
  Receipt Date: 20110512
  Transmission Date: 20111010
  Serious: Yes (Hospitalization, Other)
  Sender: FDA-Public Use
  Company Number: US-BAYER-201042065NA

PATIENT
  Age: 34 Year
  Sex: Female
  Weight: 95.692 kg

DRUGS (3)
  1. YAZ [Suspect]
     Indication: ACNE
     Route: 048
     Dates: start: 20080501
  2. CLARAVIS [Concomitant]
     Dosage: UNK
     Dates: start: 20080708
  3. ACCUTANE [Concomitant]
     Indication: ACNE

REACTIONS (2)
  - PAIN [None]
  - PULMONARY EMBOLISM [None]
